FAERS Safety Report 7579087-3 (Version None)
Quarter: 2011Q2

REPORT INFORMATION
  Report Type: 
  Country: None (occurrence: None)
  Receive Date: 20110628
  Receipt Date: 20110615
  Transmission Date: 20111010
  Serious: Yes (Hospitalization)
  Sender: FDA-Public Use
  Company Number: US-MYLANLABS-2011S1012789

PATIENT
  Age: 75 Year
  Sex: Female

DRUGS (8)
  1. PHENYTOIN [Suspect]
     Indication: CONVULSION
     Dosage: 250MG DAILY
     Route: 065
  2. CLONAZEPAM [Concomitant]
     Route: 065
  3. HYDROCHLOROTHIAZIDE [Concomitant]
     Dosage: 25MG DAILY
     Route: 065
  4. HALOPERIDOL [Concomitant]
     Dosage: 7.5MG DAILY
     Route: 065
  5. RISPERDAL CONSTA [Concomitant]
  6. ESCITALOPRAM [Concomitant]
     Dosage: 10MG DAILY
     Route: 065
  7. PHENOBARBITAL TAB [Concomitant]
     Dosage: 60MG DAILY
     Route: 065
  8. DONEPEZIL HCL [Concomitant]
     Dosage: 10MG DAILY
     Route: 065

REACTIONS (4)
  - GRAND MAL CONVULSION [None]
  - BRADYCARDIA [None]
  - ANTICONVULSANT DRUG LEVEL INCREASED [None]
  - NEUTROPENIA [None]
